FAERS Safety Report 4353490-7 (Version None)
Quarter: 2004Q2

REPORT INFORMATION
  Report Type: 
  Country: None (occurrence: None)
  Receive Date: 20040505
  Receipt Date: 20040427
  Transmission Date: 20050107
  Serious: Yes (Death, Other)
  Sender: FDA-Public Use
  Company Number: PHBS2004US05817

PATIENT
  Age: 27 Year
  Sex: Male

DRUGS (12)
  1. CYCLOSPORINE [Suspect]
     Indication: STEM CELL TRANSPLANT
     Route: 065
  2. CORTICOSTEROIDS [Concomitant]
  3. GANCICLOVIR [Concomitant]
  4. MICAFUNGIN [Suspect]
     Indication: ASPERGILLOSIS
     Dosage: 100 MG/D
  5. MICAFUNGIN [Suspect]
     Dosage: 200 MG/D
  6. AMPHOTERICIN B [Suspect]
     Indication: ASPERGILLOSIS
  7. VORICONAZOLE [Suspect]
     Indication: ASPERGILLOSIS
     Dosage: 6 MG/KG, Q12H
     Route: 042
  8. VORICONAZOLE [Suspect]
     Dosage: 4 MG/KG, BID
     Route: 042
  9. VANCOMYCIN [Concomitant]
  10. CEFEPIME [Concomitant]
  11. METHYLPREDNISOLONE [Concomitant]
  12. CASPOFUNGIN [Concomitant]

REACTIONS (11)
  - ASPERGILLOSIS [None]
  - CHEST PAIN [None]
  - CYTOMEGALOVIRUS ANTIGEN POSITIVE [None]
  - EOSINOPHILIA [None]
  - GRAFT VERSUS HOST DISEASE [None]
  - LEUKOCYTOSIS [None]
  - PLEURAL EFFUSION [None]
  - PLEURITIC PAIN [None]
  - PYREXIA [None]
  - RENAL IMPAIRMENT [None]
  - THERAPY NON-RESPONDER [None]
